FAERS Safety Report 5311962-2 (Version None)
Quarter: 2007Q2

REPORT INFORMATION
  Report Type: 
  Country: None (occurrence: None)
  Receive Date: 20070430
  Receipt Date: 20060329
  Transmission Date: 20071010
  Serious: No
  Sender: FDA-Public Use
  Company Number: 2006UW05578

PATIENT
  Age: 81 Year
  Sex: Female
  Weight: 61.7 kg

DRUGS (13)
  1. NEXIUM [Suspect]
     Indication: COUGH
     Route: 048
  2. PLETAL [Concomitant]
  3. SYNTHROID [Concomitant]
  4. HYDROCHLOROTHIAZIDE [Concomitant]
  5. DOXYCYCLINE [Concomitant]
  6. ALTACE [Concomitant]
  7. WYTENSIN [Concomitant]
  8. AMARYL [Concomitant]
  9. PLAVIX [Concomitant]
  10. FOLIC ACID [Concomitant]
  11. ATENOLOL [Concomitant]
  12. ASPIRIN [Concomitant]
  13. VYTORIN [Concomitant]

REACTIONS (4)
  - DIARRHOEA [None]
  - ERUCTATION [None]
  - GASTROOESOPHAGEAL REFLUX DISEASE [None]
  - IRRITABLE BOWEL SYNDROME [None]
